FAERS Safety Report 14991861 (Version 1)
Quarter: 2018Q2

REPORT INFORMATION
  Report Type: Spontaneous
  Country: PH (occurrence: PH)
  Receive Date: 20180608
  Receipt Date: 20180608
  Transmission Date: 20180711
  Serious: Yes (Life-Threatening, Hospitalization, Other)
  Sender: FDA-Public Use
  Company Number: PH-009507513-1805PHL014653

PATIENT
  Age: 46 Year
  Sex: Female

DRUGS (6)
  1. ASCORBIC ACID. [Suspect]
     Active Substance: ASCORBIC ACID
     Dosage: UNK
  2. PLETAAL [Suspect]
     Active Substance: CILOSTAZOL
     Indication: ISCHAEMIA
     Dosage: 50 MG, QD
     Dates: start: 20171001, end: 20180130
  3. VITAMIN D [Suspect]
     Active Substance: CHOLECALCIFEROL
     Dosage: UNK
  4. AMLODIPINE [Suspect]
     Active Substance: AMLODIPINE BESYLATE
     Indication: HYPERTENSION
     Dosage: 5 MG, QD
     Dates: start: 201706
  5. PLETAAL [Suspect]
     Active Substance: CILOSTAZOL
     Indication: CEREBRAL INFARCTION
  6. LOSARTAN POTASSIUM. [Suspect]
     Active Substance: LOSARTAN POTASSIUM
     Indication: HYPERTENSION
     Dosage: 100 MG, DAILY
     Dates: start: 20170601, end: 20180130

REACTIONS (6)
  - Haemorrhage [Recovered/Resolved]
  - Abdominal pain lower [Recovered/Resolved]
  - Leiomyoma [Unknown]
  - Haemorrhage [Recovered/Resolved]
  - Haematuria [Recovered/Resolved]
  - Haematochezia [Recovered/Resolved]

NARRATIVE: CASE EVENT DATE: 201710
